FAERS Safety Report 9115885 (Version 2)
Quarter: 2013Q1

REPORT INFORMATION
  Report Type: Spontaneous
  Country: US (occurrence: US)
  Receive Date: 20130225
  Receipt Date: 20130315
  Transmission Date: 20140127
  Serious: Yes (Hospitalization)
  Sender: FDA-Public Use
  Company Number: US-GLAXOSMITHKLINE-A1013478A

PATIENT
  Age: 20 Year
  Sex: Female
  Weight: 65 kg

DRUGS (2)
  1. ADVAIR [Suspect]
     Indication: PRODUCT USED FOR UNKNOWN INDICATION
     Route: 055
  2. VENTOLIN HFA [Suspect]
     Indication: PRODUCT USED FOR UNKNOWN INDICATION
     Dosage: 90MCG UNKNOWN
     Route: 055

REACTIONS (4)
  - Lobar pneumonia [Recovering/Resolving]
  - Asthma [Recovering/Resolving]
  - Drug administration error [Unknown]
  - White blood cell count increased [Recovering/Resolving]
